FAERS Safety Report 10461921 (Version 3)
Quarter: 2014Q4

REPORT INFORMATION
  Report Type: Report from Study
  Country: DE (occurrence: DE)
  Receive Date: 20140918
  Receipt Date: 20141001
  Transmission Date: 20150528
  Serious: Yes (Death, Hospitalization)
  Sender: FDA-Public Use
  Company Number: PHHY2014DE037790

PATIENT
  Sex: Female
  Weight: 100 kg

DRUGS (3)
  1. EXEMESTANE. [Concomitant]
     Active Substance: EXEMESTANE
     Dosage: 25 MG, QD
     Route: 048
     Dates: start: 20140127, end: 20140523
  2. AFINITOR [Suspect]
     Active Substance: EVEROLIMUS
     Indication: BREAST CANCER METASTATIC
     Dosage: 10 MG, QD
     Route: 048
     Dates: start: 20130620, end: 20131223
  3. EXEMESTANE. [Concomitant]
     Active Substance: EXEMESTANE
     Indication: BREAST CANCER METASTATIC
     Dosage: 25 MG, QD
     Route: 048
     Dates: start: 20130620, end: 20131223

REACTIONS (2)
  - Malignant neoplasm progression [Fatal]
  - Oedema peripheral [Unknown]

NARRATIVE: CASE EVENT DATE: 20140321
